FAERS Safety Report 5971758-5 (Version None)
Quarter: 2008Q4

REPORT INFORMATION
  Report Type: 
  Country: None (occurrence: None)
  Receive Date: 20081201
  Receipt Date: 20081118
  Transmission Date: 20090506
  Serious: Yes (Other)
  Sender: FDA-Public Use
  Company Number: US-JNJFOC-20071000718

PATIENT
  Sex: Female
  Weight: 77.11 kg

DRUGS (9)
  1. REMICADE [Suspect]
     Indication: CROHN'S DISEASE
     Route: 042
  2. REMICADE [Suspect]
     Indication: RHEUMATOID ARTHRITIS
     Route: 042
  3. CELEBREX [Concomitant]
     Indication: PAIN
  4. DITROPAN XL [Concomitant]
     Indication: BLADDER DISORDER
  5. METHOTREXATE [Concomitant]
     Indication: RHEUMATOID ARTHRITIS
  6. XANAX [Concomitant]
     Indication: NERVOUSNESS
  7. FOLIC ACID [Concomitant]
     Indication: MEDICAL DIET
  8. PREDNISONE TAB [Concomitant]
     Indication: RHEUMATOID ARTHRITIS
  9. LEXAPRO [Concomitant]

REACTIONS (1)
  - OPTIC NEUROPATHY [None]
